FAERS Safety Report 16064742 (Version 2)
Quarter: 2019Q2

REPORT INFORMATION
  Report Type: Spontaneous
  Country: IL (occurrence: IL)
  Receive Date: 20190312
  Receipt Date: 20190508
  Transmission Date: 20190711
  Serious: Yes (Hospitalization, Other)
  Sender: FDA-Public Use
  Company Number: IL-ALLERGAN-1909448US

PATIENT
  Sex: Male
  Weight: 80 kg

DRUGS (2)
  1. RISEDRONATE SODIUM UNK [Suspect]
     Active Substance: RISEDRONATE SODIUM
     Indication: LYMPHOMA
  2. RISEDRONATE SODIUM UNK [Suspect]
     Active Substance: RISEDRONATE SODIUM
     Indication: OSTEOPOROSIS
     Dosage: 150 MG, Q MONTH
     Route: 048
     Dates: start: 201606, end: 201609

REACTIONS (4)
  - Scleritis [Recovered/Resolved with Sequelae]
  - Orbital myositis [Recovered/Resolved with Sequelae]
  - Parophthalmia [Recovered/Resolved with Sequelae]
  - Off label use [Unknown]

NARRATIVE: CASE EVENT DATE: 201606
